FAERS Safety Report 6836753-2 (Version None)
Quarter: 2010Q3

REPORT INFORMATION
  Report Type: 
  Country: None (occurrence: None)
  Receive Date: 20100713
  Receipt Date: 20100318
  Transmission Date: 20110219
  Serious: No
  Sender: FDA-Public Use
  Company Number: US-BAUSCH-2010BL001491

PATIENT
  Age: 5 Year
  Sex: Male

DRUGS (2)
  1. OFLOXACIN [Suspect]
     Indication: MYRINGOTOMY
     Route: 001
     Dates: start: 20100318, end: 20100318
  2. OFLOXACIN [Suspect]
     Indication: OFF LABEL USE
     Route: 001
     Dates: start: 20100318, end: 20100318

REACTIONS (1)
  - EAR PAIN [None]
